FAERS Safety Report 8315582-7 (Version None)
Quarter: 2012Q2

REPORT INFORMATION
  Report Type: 
  Country: None (occurrence: None)
  Receive Date: 20120426
  Receipt Date: 20120424
  Transmission Date: 20120825
  Serious: Yes (Hospitalization)
  Sender: FDA-Public Use
  Company Number: US-ROCHE-1039455

PATIENT
  Sex: Female

DRUGS (10)
  1. XOLAIR [Suspect]
     Indication: PRODUCT USED FOR UNKNOWN INDICATION
     Dates: start: 20100501
  2. QVAR 40 [Concomitant]
     Indication: ASTHMA
     Dosage: 1 PUFF
  3. ZYRTEC [Concomitant]
     Indication: ASTHMA
     Route: 048
  4. ATARAX [Concomitant]
     Indication: URTICARIA
     Route: 048
  5. GEODON [Concomitant]
     Indication: BIPOLAR DISORDER
     Route: 048
  6. NASONEX [Concomitant]
     Indication: RHINITIS ALLERGIC
     Dosage: 2 PUFFS
     Route: 048
  7. SYMBICORT [Concomitant]
     Indication: ASTHMA
     Dosage: 160/4.5 TWO PUFFS
  8. PREVACID [Concomitant]
     Indication: GASTROOESOPHAGEAL REFLUX DISEASE
     Route: 048
  9. ZOLOFT [Concomitant]
     Indication: BIPOLAR DISORDER
     Route: 048
  10. DDAVP [Concomitant]
     Indication: ENURESIS
     Route: 048

REACTIONS (5)
  - HYPERSENSITIVITY [None]
  - DYSPNOEA [None]
  - WHEEZING [None]
  - ANAPHYLACTIC SHOCK [None]
  - URTICARIA [None]
